FAERS Safety Report 11400723 (Version 1)
Quarter: 2015Q3

REPORT INFORMATION
  Report Type: Spontaneous
  Country: US (occurrence: US)
  Receive Date: 20150820
  Receipt Date: 20150820
  Transmission Date: 20151125
  Serious: Yes (Hospitalization)
  Sender: FDA-Public Use
  Company Number: US-BRISTOL-MYERS SQUIBB COMPANY-BMS-2015-053646

PATIENT
  Sex: Female

DRUGS (2)
  1. COUMADIN [Suspect]
     Active Substance: WARFARIN SODIUM
     Indication: COAGULOPATHY
     Route: 065
  2. ARGATROBAN. [Suspect]
     Active Substance: ARGATROBAN
     Indication: COAGULOPATHY
     Dosage: UNK
     Route: 065
     Dates: start: 201401

REACTIONS (3)
  - Thrombosis [Unknown]
  - International normalised ratio increased [Unknown]
  - Surgery [Unknown]

NARRATIVE: CASE EVENT DATE: 20140122
